FAERS Safety Report 14320089 (Version 3)
Quarter: 2018Q1

REPORT INFORMATION
  Report Type: Report from Study
  Country: US (occurrence: US)
  Receive Date: 20171222
  Receipt Date: 20180224
  Transmission Date: 20180509
  Serious: Yes (Death, Other)
  Sender: FDA-Public Use
  Company Number: PHEH2017US041429

PATIENT
  Sex: Female
  Weight: 62 kg

DRUGS (1)
  1. ZOMETA [Suspect]
     Active Substance: ZOLEDRONIC ACID
     Indication: METASTASES TO BONE
     Dosage: 4 MG, QMO (EVERY 28 DAYS)
     Route: 042
     Dates: start: 20140130, end: 20150324

REACTIONS (13)
  - Metastases to bone [Unknown]
  - Endometriosis [Unknown]
  - Metastases to lymph nodes [Unknown]
  - Inflammatory carcinoma of breast stage IV [Unknown]
  - Endometrial atrophy [Unknown]
  - Breast cancer metastatic [Fatal]
  - Metastases to ovary [Unknown]
  - Endometrial disorder [Unknown]
  - Metastases to lung [Fatal]
  - Malignant neoplasm progression [Fatal]
  - Femur fracture [Unknown]
  - Uterine leiomyoma [Unknown]
  - Metastases to liver [Fatal]
